FAERS Safety Report 14707782 (Version 1)
Quarter: 2018Q2

REPORT INFORMATION
  Report Type: Spontaneous
  Country: US (occurrence: US)
  Receive Date: 20180403
  Receipt Date: 20180403
  Transmission Date: 20180711
  Serious: Yes (Other)
  Sender: FDA-Public Use
  Company Number: US-UNICHEM PHARMACEUTICALS (USA) INC-UCM201803-000078

PATIENT
  Age: 79 Year
  Sex: Female

DRUGS (6)
  1. MEMANTINE. [Suspect]
     Active Substance: MEMANTINE
     Indication: DEMENTIA ALZHEIMER^S TYPE
  2. QUETIAPINE FUMARATE. [Suspect]
     Active Substance: QUETIAPINE FUMARATE
  3. LORAZEPAM. [Suspect]
     Active Substance: LORAZEPAM
  4. MEMANTINE. [Suspect]
     Active Substance: MEMANTINE
  5. OLANZAPINE. [Concomitant]
     Active Substance: OLANZAPINE
  6. SERTRALINE [Suspect]
     Active Substance: SERTRALINE HYDROCHLORIDE

REACTIONS (1)
  - Bradycardia [Recovered/Resolved]
